FAERS Safety Report 9889551 (Version 2)
Quarter: 2014Q1

REPORT INFORMATION
  Report Type: Spontaneous
  Country: PL (occurrence: PL)
  Receive Date: 20140211
  Receipt Date: 20140211
  Transmission Date: 20141002
  Serious: Yes (Hospitalization, Other)
  Sender: FDA-Public Use
  Company Number: PL-BAXTER-2014BAX001069

PATIENT
  Age: 21 Year
  Sex: Female

DRUGS (6)
  1. CIPROFLOXACIN REDIBAG 2 MG/ML [Suspect]
     Indication: CHOLELITHIASIS
     Route: 065
  2. CIPROFLOXACIN REDIBAG 2 MG/ML [Suspect]
     Indication: URINARY TRACT INFECTION
     Route: 065
  3. FURAGIN                            /00356801/ [Concomitant]
     Indication: PRODUCT USED FOR UNKNOWN INDICATION
     Route: 065
  4. PANTOPRAZOLE [Concomitant]
     Indication: PRODUCT USED FOR UNKNOWN INDICATION
     Route: 065
  5. ACETAMINOPHEN [Concomitant]
     Indication: PRODUCT USED FOR UNKNOWN INDICATION
     Route: 065
  6. TRAMADOL [Concomitant]
     Indication: PRODUCT USED FOR UNKNOWN INDICATION
     Route: 065

REACTIONS (2)
  - Pyelonephritis acute [Recovered/Resolved]
  - Porphyria acute [Recovered/Resolved]
